FAERS Safety Report 7064917-4 (Version None)
Quarter: 2010Q4

REPORT INFORMATION
  Report Type: 
  Country: None (occurrence: None)
  Receive Date: 20101027
  Receipt Date: 20101018
  Transmission Date: 20110411
  Serious: Yes (Other)
  Sender: FDA-Public Use
  Company Number: CH-PFIZER INC-2010132861

PATIENT
  Age: 79 Year
  Sex: Male

DRUGS (1)
  1. SUTENT [Suspect]
     Dosage: UNK
     Dates: start: 20100201

REACTIONS (2)
  - DRUG TOXICITY [None]
  - PERFORMANCE STATUS DECREASED [None]
